FAERS Safety Report 16890409 (Version 2)
Quarter: 2019Q4

REPORT INFORMATION
  Report Type: Spontaneous
  Country: FR (occurrence: FR)
  Receive Date: 20191007
  Receipt Date: 20191015
  Transmission Date: 20200122
  Serious: Yes (Other)
  Sender: FDA-Public Use
  Company Number: FR-JNJFOC-20190937063

PATIENT
  Age: 46 Year
  Sex: Female

DRUGS (2)
  1. EPITOMAX [Suspect]
     Active Substance: TOPIRAMATE
     Indication: HEADACHE
     Route: 048
     Dates: start: 20160301
  2. NOCERTONE [Concomitant]
     Active Substance: OXETORONE
     Route: 048

REACTIONS (17)
  - Impatience [Unknown]
  - Asthenia [Unknown]
  - Somnolence [Unknown]
  - Disturbance in attention [Unknown]
  - Off label use [Unknown]
  - Rheumatoid arthritis [Unknown]
  - Weight decreased [Unknown]
  - Tinnitus [Unknown]
  - Vertigo [Unknown]
  - Amnesia [Unknown]
  - Depression [Unknown]
  - Nausea [Unknown]
  - Coordination abnormal [Unknown]
  - Paraesthesia [Unknown]
  - Decreased appetite [Unknown]
  - Product use in unapproved indication [Unknown]
  - Pain [Unknown]

NARRATIVE: CASE EVENT DATE: 2016
